FAERS Safety Report 9193612 (Version 1)
Quarter: 2013Q1

REPORT INFORMATION
  Report Type: Spontaneous
  Country: US (occurrence: None)
  Receive Date: 20130325
  Receipt Date: 20130325
  Transmission Date: 20140127
  Serious: Yes (Other)
  Sender: FDA-Public Use
  Company Number: None

PATIENT
  Age: 42 Year
  Sex: Female
  Weight: 58.97 kg

DRUGS (2)
  1. ESCITALOPRAM 5 MG TEVA [Suspect]
     Indication: DEPRESSION
     Dosage: 5 MG 1X DAILY PO
     Route: 048
     Dates: start: 20121220, end: 20130324
  2. ESCITALOPRAM 5 MG TEVA [Suspect]
     Indication: ANXIETY
     Dosage: 5 MG 1X DAILY PO
     Route: 048
     Dates: start: 20121220, end: 20130324

REACTIONS (9)
  - Headache [None]
  - Night sweats [None]
  - Insomnia [None]
  - Palpitations [None]
  - Mood altered [None]
  - Anxiety [None]
  - Depression [None]
  - Apathy [None]
  - Product substitution issue [None]
